FAERS Safety Report 6766243-7 (Version None)
Quarter: 2010Q2

REPORT INFORMATION
  Report Type: 
  Country: None (occurrence: None)
  Receive Date: 20100601
  Receipt Date: 20100517
  Transmission Date: 20101027
  Serious: Yes (Other)
  Sender: FDA-Public Use
  Company Number: 2010022289

PATIENT
  Sex: Male
  Weight: 92 kg

DRUGS (8)
  1. VIVAGLOBIN [Suspect]
     Indication: IMMUNODEFICIENCY COMMON VARIABLE
     Dosage: (9.6 G, 9.6G WEEKLY (16% CONCENTRATION) SUBCUTANEOUS), (SUBCUTANEOUS)
     Route: 058
     Dates: start: 20090301
  2. VIVAGLOBIN [Suspect]
  3. VIVAGLOBIN [Suspect]
  4. VIVAGLOBIN [Suspect]
  5. VIVAGLOBIN [Suspect]
  6. VIVAGLOBIN [Suspect]
  7. VIVAGLOBIN [Suspect]
     Route: 058
  8. MESALAMINE [Concomitant]

REACTIONS (4)
  - ANTI-HBC IGG ANTIBODY POSITIVE [None]
  - ANTI-HBS ANTIBODY POSITIVE [None]
  - FALSE POSITIVE LABORATORY RESULT [None]
  - HEPATITIS B SURFACE ANTIGEN POSITIVE [None]
